FAERS Safety Report 10156750 (Version 3)
Quarter: 2014Q2

REPORT INFORMATION
  Report Type: Spontaneous
  Country: US (occurrence: US)
  Receive Date: 20140507
  Receipt Date: 20140522
  Transmission Date: 20141212
  Serious: Yes (Hospitalization, Other)
  Sender: FDA-Public Use
  Company Number: US-ROCHE-1347467

PATIENT
  Sex: Female
  Weight: 117.13 kg

DRUGS (7)
  1. XELODA [Suspect]
     Indication: BREAST CANCER
     Dosage: 14 DAYS ON 7 DAYS OFF; MORNING
     Route: 048
     Dates: start: 20140118
  2. XELODA [Suspect]
     Dosage: 14 DAYS OUT OF 21 DAY CYCLE
     Route: 048
     Dates: start: 20140219
  3. XELODA [Suspect]
     Dosage: 14 DAYS OUT OF 21 DAY CYCLE
     Route: 048
     Dates: start: 20140118
  4. TYKERB [Suspect]
     Indication: BREAST CANCER
     Route: 048
     Dates: start: 20140117
  5. OXYCONTIN [Concomitant]
  6. HYDROXYZINE [Concomitant]
  7. ONDANSETRON [Concomitant]

REACTIONS (17)
  - Dyspnoea [Unknown]
  - Pulmonary thrombosis [Unknown]
  - Thrombosis [Unknown]
  - Diarrhoea [Not Recovered/Not Resolved]
  - Fatigue [Not Recovered/Not Resolved]
  - Rash macular [Not Recovered/Not Resolved]
  - Dehydration [Not Recovered/Not Resolved]
  - Weight decreased [Not Recovered/Not Resolved]
  - Insomnia [Not Recovered/Not Resolved]
  - Vomiting [Not Recovered/Not Resolved]
  - Erythema [Unknown]
  - Palmar-plantar erythrodysaesthesia syndrome [Not Recovered/Not Resolved]
  - Dyspnoea [Not Recovered/Not Resolved]
  - Oedema peripheral [Not Recovered/Not Resolved]
  - Drug dose omission [Unknown]
  - Alopecia [Unknown]
  - Skin ulcer [Unknown]
